FAERS Safety Report 17784907 (Version 2)
Quarter: 2022Q3

REPORT INFORMATION
  Report Type: Spontaneous
  Country: LT (occurrence: LT)
  Receive Date: 20200513
  Receipt Date: 20220909
  Transmission Date: 20221027
  Serious: Yes (Life-Threatening, Hospitalization)
  Sender: FDA-Public Use
  Company Number: None

PATIENT
  Age: 57 Year
  Sex: Male
  Weight: 104 kg

DRUGS (19)
  1. ENALAPRIL [Suspect]
     Active Substance: ENALAPRIL
     Indication: Hypertension
     Dosage: 20 MG
     Route: 048
     Dates: start: 20191218, end: 20191219
  2. DIAZEPAM [Suspect]
     Active Substance: DIAZEPAM
     Indication: Delirium
     Dosage: 6 ML I.V.
     Route: 042
     Dates: start: 20191217, end: 20191219
  3. DIAZEPAM [Suspect]
     Active Substance: DIAZEPAM
     Indication: Alcohol abuse
  4. DIAZEPAM [Suspect]
     Active Substance: DIAZEPAM
     Indication: Mental disorder
  5. HERBALS\SILYBUM MARIANUM WHOLE [Suspect]
     Active Substance: HERBALS\SILYBUM MARIANUM WHOLE
     Indication: Hepatitis alcoholic
     Dosage: 67.5 MG
     Route: 048
     Dates: start: 20191218, end: 20191219
  6. CHLORPROTHIXENE [Suspect]
     Active Substance: CHLORPROTHIXENE
     Indication: Mental disorder
     Dosage: 50 MG
     Route: 048
     Dates: start: 20191217, end: 20191217
  7. CHLORPROTHIXENE [Suspect]
     Active Substance: CHLORPROTHIXENE
     Indication: Delirium
  8. CHLORPROTHIXENE [Suspect]
     Active Substance: CHLORPROTHIXENE
     Indication: Alcohol abuse
  9. METOPROLOL [Suspect]
     Active Substance: METOPROLOL
     Indication: Hypertension
     Dosage: 50 MG
     Route: 048
     Dates: start: 20191218, end: 20191219
  10. AMLODIPINE [Suspect]
     Active Substance: AMLODIPINE BESYLATE
     Indication: Hypertension
     Dosage: 5 MG
     Route: 048
     Dates: start: 20191218, end: 20191218
  11. TIAPRIDE [Suspect]
     Active Substance: TIAPRIDE
     Indication: Psychomotor hyperactivity
     Dosage: 300 MG
     Route: 048
     Dates: start: 20191219, end: 20191219
  12. RINGERS SOLUTION [Suspect]
     Active Substance: CALCIUM CHLORIDE\POTASSIUM CHLORIDE\SODIUM CHLORIDE
     Indication: Detoxification
     Dosage: 500 ML
     Route: 040
     Dates: start: 20191218, end: 20191218
  13. ASPIRIN [Suspect]
     Active Substance: ASPIRIN
     Indication: Hypertension
     Dosage: 100 MG
     Route: 048
     Dates: start: 20191217, end: 20191218
  14. SODIUM CHLORIDE [Suspect]
     Active Substance: SODIUM CHLORIDE
     Indication: Detoxification
     Dosage: 500 ML
     Route: 040
     Dates: start: 20191218, end: 20191218
  15. TRIHEXYPHENIDYL [Suspect]
     Active Substance: TRIHEXYPHENIDYL
     Indication: Product used for unknown indication
     Dosage: 4 MG
     Route: 048
     Dates: start: 20191219, end: 20191219
  16. MAGNESIUM [Suspect]
     Active Substance: MAGNESIUM
     Indication: Detoxification
     Dosage: 500 ML
     Route: 040
     Dates: start: 20191218, end: 20191218
  17. HALOPERIDOL [Suspect]
     Active Substance: HALOPERIDOL
     Indication: Delirium
     Dosage: 5 MG
     Route: 030
     Dates: start: 20191217, end: 20191218
  18. HALOPERIDOL [Suspect]
     Active Substance: HALOPERIDOL
     Indication: Mental disorder
  19. HALOPERIDOL [Suspect]
     Active Substance: HALOPERIDOL
     Indication: Alcohol abuse

REACTIONS (2)
  - Respiratory disorder [Recovered/Resolved]
  - Neck pain [Recovered/Resolved]

NARRATIVE: CASE EVENT DATE: 20191219
